FAERS Safety Report 5193563-2 (Version None)
Quarter: 2006Q4

REPORT INFORMATION
  Report Type: 
  Country: None (occurrence: None)
  Receive Date: 20061221
  Receipt Date: 20061215
  Transmission Date: 20070319
  Serious: Yes (Hospitalization, Other)
  Sender: FDA-Public Use
  Company Number: 163-21880-06081424

PATIENT
  Age: 82 Year
  Sex: Female

DRUGS (6)
  1. REVLIMID [Suspect]
     Indication: MYELODYSPLASTIC SYNDROME
     Dosage: 10 MG, QD X 3 WKS, ORAL
     Route: 048
     Dates: start: 20060301, end: 20060601
  2. ZOCOR [Concomitant]
  3. LANOXIN [Concomitant]
  4. M.V.I. [Concomitant]
  5. SPIRONOLACTONE [Concomitant]
  6. OXYCODONE HCL [Concomitant]

REACTIONS (4)
  - CLOSTRIDIUM DIFFICILE COLITIS [None]
  - FAILURE TO THRIVE [None]
  - GASTROINTESTINAL HAEMORRHAGE [None]
  - POLYP [None]
